FAERS Safety Report 5232061-4 (Version None)
Quarter: 2007Q1

REPORT INFORMATION
  Report Type: 
  Country: None (occurrence: None)
  Receive Date: 20070205
  Receipt Date: 20070126
  Transmission Date: 20070707
  Serious: Yes (Other)
  Sender: FDA-Public Use
  Company Number: CHNY2007JP00509

PATIENT
  Age: 43 Year
  Sex: Female

DRUGS (2)
  1. NICOTINE [Suspect]
     Indication: SMOKING CESSATION THERAPY
     Dosage: 21 MG, QD, TRANSDERMAL; SEE IMAGE
     Route: 062
     Dates: start: 20061215
  2. NICOTINE [Suspect]
     Indication: SMOKING CESSATION THERAPY
     Dosage: 21 MG, QD, TRANSDERMAL; SEE IMAGE
     Route: 062
     Dates: start: 20070106

REACTIONS (1)
  - PANIC REACTION [None]
